FAERS Safety Report 12118609 (Version 1)
Quarter: 2016Q1

REPORT INFORMATION
  Report Type: Spontaneous
  Country: GB (occurrence: GB)
  Receive Date: 20160226
  Receipt Date: 20160226
  Transmission Date: 20160526
  Serious: Yes (Other)
  Sender: FDA-Public Use
  Company Number: GB-BAYER-2016-031173

PATIENT
  Age: 32 Year
  Sex: Female
  Weight: 63.5 kg

DRUGS (1)
  1. CIPROFLOXACIN MONOHYDROCHLORIDE [Suspect]
     Active Substance: CIPROFLOXACIN
     Indication: URINARY TRACT INFECTION BACTERIAL
     Dosage: 500 MG, BID
     Route: 048
     Dates: start: 20160125, end: 20160126

REACTIONS (7)
  - Pruritus [Unknown]
  - Henoch-Schonlein purpura [Recovering/Resolving]
  - Contusion [Unknown]
  - Nausea [Unknown]
  - Petechiae [Unknown]
  - Urticaria [Recovering/Resolving]
  - Purpura [Unknown]

NARRATIVE: CASE EVENT DATE: 20160126
